FAERS Safety Report 4436618-X (Version None)
Quarter: 2004Q3

REPORT INFORMATION
  Report Type: 
  Country: None (occurrence: None)
  Receive Date: 20040830
  Receipt Date: 20040720
  Transmission Date: 20050211
  Serious: Yes (Hospitalization)
  Sender: FDA-Public Use
  Company Number: US-BRISTOL-MYERS SQUIBB COMPANY-12645859

PATIENT
  Sex: Female

DRUGS (2)
  1. ABILIFY [Suspect]
     Indication: SCHIZOPHRENIA
     Dosage: INITIATED 1 YEAR PRIOR TO THE REPORT; DISCONTINUED 6-9 MONTHS AGO; RESTARTED.
     Route: 048
  2. HYDROCHLOROTHIAZIDE [Concomitant]
     Dosage: 12.5 OR 25 MG DAILY

REACTIONS (2)
  - DYSKINESIA [None]
  - PSYCHOTIC DISORDER [None]
